FAERS Safety Report 15387513 (Version 3)
Quarter: 2021Q1

REPORT INFORMATION
  Report Type: Report from Study
  Country: CO (occurrence: CO)
  Receive Date: 20180914
  Receipt Date: 20210105
  Transmission Date: 20210419
  Serious: Yes (Hospitalization, Other)
  Sender: FDA-Public Use
  Company Number: PHHY2018CO059767

PATIENT
  Age: 57 Year
  Sex: Female
  Weight: 52 kg

DRUGS (18)
  1. XOLAIR [Suspect]
     Active Substance: OMALIZUMAB
     Dosage: 600 MG, QMO
     Route: 058
     Dates: start: 202009
  2. XOLAIR [Suspect]
     Active Substance: OMALIZUMAB
     Dosage: 2 DF (300 MG), QMO
     Route: 058
     Dates: end: 20180407
  3. LORATADINE. [Concomitant]
     Active Substance: LORATADINE
     Indication: PRODUCT USED FOR UNKNOWN INDICATION
     Dosage: 10 MG, Q24H
     Route: 048
     Dates: start: 20180830
  4. SPIRIVA [Concomitant]
     Active Substance: TIOTROPIUM BROMIDE MONOHYDRATE
     Dosage: UNK, Q12H (1 PUFF)
     Route: 048
  5. XOLAIR [Suspect]
     Active Substance: OMALIZUMAB
     Dosage: 2 DF (300 MG), QMO
     Route: 058
     Dates: start: 201808
  6. XOLAIR [Suspect]
     Active Substance: OMALIZUMAB
     Indication: ASTHMA
     Dosage: 150 MG, Q2W
     Route: 058
     Dates: start: 20171130
  7. OMEPRAZOLE. [Concomitant]
     Active Substance: OMEPRAZOLE
     Indication: REFLUX GASTRITIS
     Dosage: UNK (AT NEED)
     Route: 048
  8. SYMBICORT [Concomitant]
     Active Substance: BUDESONIDE\FORMOTEROL FUMARATE DIHYDRATE
     Dosage: UNK, Q12H (1 PUFF)
     Route: 048
  9. OXYGEN. [Concomitant]
     Active Substance: OXYGEN
     Indication: PRODUCT USED FOR UNKNOWN INDICATION
     Dosage: 2 L, 16 HOURS DAILY
     Route: 045
     Dates: start: 201605
  10. XOLAIR [Suspect]
     Active Substance: OMALIZUMAB
     Dosage: 600 MG, QMO
     Route: 058
     Dates: end: 202008
  11. SYMBICORT [Concomitant]
     Active Substance: BUDESONIDE\FORMOTEROL FUMARATE DIHYDRATE
     Indication: ASTHMA
     Dosage: 160 OT, UNK
     Route: 048
     Dates: start: 2016
  12. MONTELUKAST SODIUM. [Suspect]
     Active Substance: MONTELUKAST SODIUM
     Indication: ASTHMA
     Dosage: 10 MG, QD (STARTED MORE 10 YEARS AGO)
     Route: 048
  13. XOLAIR [Suspect]
     Active Substance: OMALIZUMAB
     Dosage: 150 MG, EVERY 15 DAYS
     Route: 058
     Dates: start: 201712
  14. XOLAIR [Suspect]
     Active Substance: OMALIZUMAB
     Dosage: 300 MG, QMO
     Route: 058
  15. BECLOMETASONE [Concomitant]
     Active Substance: BECLOMETHASONE DIPROPIONATE
     Indication: PRODUCT USED FOR UNKNOWN INDICATION
     Dosage: 2 DF (2 PUFF IN EACH NOSTRIL) Q12H
     Route: 045
     Dates: start: 20180830
  16. XOLAIR [Suspect]
     Active Substance: OMALIZUMAB
     Dosage: 300 MG, QMO
     Route: 058
     Dates: start: 20171130
  17. SPIRIVA [Concomitant]
     Active Substance: TIOTROPIUM BROMIDE MONOHYDRATE
     Indication: ASTHMA
     Dosage: 2 DF, QD
     Route: 048
     Dates: start: 2015
  18. SYMBICORT [Concomitant]
     Active Substance: BUDESONIDE\FORMOTEROL FUMARATE DIHYDRATE
     Dosage: 320 OT, UNK
     Route: 048
     Dates: start: 2016

REACTIONS (20)
  - Urticaria [Unknown]
  - Sneezing [Unknown]
  - Erythema [Unknown]
  - Pruritus [Unknown]
  - Obstruction [Not Recovered/Not Resolved]
  - Cough [Recovered/Resolved]
  - Inappropriate schedule of product administration [Recovered/Resolved]
  - Influenza [Not Recovered/Not Resolved]
  - Nasopharyngitis [Not Recovered/Not Resolved]
  - Upper-airway cough syndrome [Unknown]
  - Productive cough [Recovered/Resolved]
  - Respiratory disorder [Recovered/Resolved]
  - Pneumonia [Recovered/Resolved]
  - Asthmatic crisis [Not Recovered/Not Resolved]
  - Productive cough [Unknown]
  - Choking [Not Recovered/Not Resolved]
  - Feeling abnormal [Not Recovered/Not Resolved]
  - Product prescribing error [Recovered/Resolved]
  - Pyrexia [Recovered/Resolved]
  - Weight increased [Recovering/Resolving]

NARRATIVE: CASE EVENT DATE: 20171130
